FAERS Safety Report 9425010 (Version 1)
Quarter: 2013Q3

REPORT INFORMATION
  Report Type: Spontaneous
  Country: US (occurrence: US)
  Receive Date: 20130729
  Receipt Date: 20130729
  Transmission Date: 20140515
  Serious: No
  Sender: FDA-Public Use
  Company Number: US-PFIZER INC-2013219799

PATIENT
  Age: 50 Year
  Sex: Male
  Weight: 85.7 kg

DRUGS (1)
  1. NICOTROL INHALER [Suspect]
     Indication: SMOKING CESSATION THERAPY
     Dosage: UNK (ONE CARTRIDGE ALL DAY)

REACTIONS (3)
  - Drug effect incomplete [Unknown]
  - Headache [Unknown]
  - Vomiting [Unknown]
